FAERS Safety Report 5921049-3 (Version None)
Quarter: 2008Q4

REPORT INFORMATION
  Report Type: 
  Country: None (occurrence: None)
  Receive Date: 20081016
  Receipt Date: 20081010
  Transmission Date: 20090506
  Serious: Yes (Other)
  Sender: FDA-Public Use
  Company Number: US-ALLERGAN-0812843US

PATIENT
  Sex: Male

DRUGS (2)
  1. BOTOX [Suspect]
     Indication: BACK PAIN
     Dosage: UNK, SINGLE
     Route: 030
  2. BOTOX [Suspect]
     Indication: ARTHRALGIA

REACTIONS (3)
  - ASTHENIA [None]
  - MUSCLE SPASMS [None]
  - THERAPEUTIC RESPONSE DECREASED [None]
